FAERS Safety Report 5117470-6 (Version None)
Quarter: 2006Q3

REPORT INFORMATION
  Report Type: 
  Country: None (occurrence: None)
  Receive Date: 20060929
  Receipt Date: 20060916
  Transmission Date: 20061208
  Serious: Yes (Hospitalization, Other)
  Sender: FDA-Public Use
  Company Number: US-AMGEN-STX193926

PATIENT
  Sex: Male

DRUGS (2)
  1. ENBREL [Suspect]
     Indication: RHEUMATOID ARTHRITIS
     Route: 058
     Dates: start: 20010801
  2. METHOTREXATE [Concomitant]
     Route: 065
     Dates: start: 20060401

REACTIONS (4)
  - INJECTION SITE IRRITATION [None]
  - LIPOMA [None]
  - MEDICAL DEVICE REMOVAL [None]
  - POSTOPERATIVE WOUND INFECTION [None]
